FAERS Safety Report 8911886 (Version 1)
Quarter: 2012Q4

REPORT INFORMATION
  Report Type: 
  Country: BR (occurrence: BR)
  Receive Date: 20121116
  Receipt Date: 20121116
  Transmission Date: 20130627
  Serious: Yes (Other)
  Sender: FDA-Public Use
  Company Number: BR-JNJFOC-20121105067

PATIENT

DRUGS (2)
  1. REMICADE [Suspect]
     Indication: PSORIATIC ARTHROPATHY
     Route: 042
     Dates: start: 2009
  2. REMICADE [Suspect]
     Indication: PSORIASIS
     Route: 042
     Dates: start: 2009

REACTIONS (1)
  - Labyrinthitis [Not Recovered/Not Resolved]
